FAERS Safety Report 8389858-1 (Version None)
Quarter: 2012Q2

REPORT INFORMATION
  Report Type: 
  Country: None (occurrence: None)
  Receive Date: 20120522
  Receipt Date: 20120515
  Transmission Date: 20120825
  Serious: Yes (Hospitalization)
  Sender: FDA-Public Use
  Company Number: DSA_56494_2012

PATIENT
  Sex: Female

DRUGS (3)
  1. XENAZINE [Suspect]
     Indication: HUNTINGTON'S DISEASE
     Dosage: (12.5 MG BID), (12.5 MG BID)
     Dates: start: 20120401
  2. XENAZINE [Suspect]
     Indication: HUNTINGTON'S DISEASE
     Dosage: (12.5 MG BID), (12.5 MG BID)
     Dates: start: 20110601, end: 20110801
  3. UNSPECIFIED DRUGS [Concomitant]

REACTIONS (2)
  - UNEVALUABLE EVENT [None]
  - EPISTAXIS [None]
